FAERS Safety Report 9605840 (Version 1)
Quarter: 2013Q4

REPORT INFORMATION
  Report Type: Spontaneous
  Country: PR (occurrence: PR)
  Receive Date: 20131008
  Receipt Date: 20131008
  Transmission Date: 20140711
  Serious: Yes (Hospitalization)
  Sender: FDA-Public Use
  Company Number: PR-MYLANLABS-2013S1021905

PATIENT
  Age: 67 Year
  Sex: Female

DRUGS (2)
  1. AMIODARONE [Suspect]
     Indication: ARRHYTHMIA
     Dosage: 200MG DAILY
     Route: 048
  2. AMIODARONE [Suspect]
     Indication: ARRHYTHMIA
     Route: 050

REACTIONS (5)
  - Hyperthyroidism [Recovering/Resolving]
  - Left atrial dilatation [Recovering/Resolving]
  - Right atrial dilatation [Recovering/Resolving]
  - Mitral valve incompetence [Recovering/Resolving]
  - Aortic valve incompetence [Recovering/Resolving]
